FAERS Safety Report 12119696 (Version 1)
Quarter: 2016Q1

REPORT INFORMATION
  Report Type: Spontaneous
  Country: US (occurrence: US)
  Receive Date: 20160226
  Receipt Date: 20160226
  Transmission Date: 20160526
  Serious: Yes (Hospitalization, Other)
  Sender: FDA-Public Use
  Company Number: US-TALECRIS-GTI002410

PATIENT
  Age: 54 Year
  Sex: Female
  Weight: 81 kg

DRUGS (4)
  1. GAMMAKED [Suspect]
     Active Substance: HUMAN IMMUNOGLOBULIN G
     Indication: CHRONIC INFLAMMATORY DEMYELINATING POLYRADICULONEUROPATHY
     Dates: start: 20140624, end: 20140627
  2. CELEBREX [Concomitant]
     Active Substance: CELECOXIB
     Route: 048
  3. ZOLOFT [Concomitant]
     Active Substance: SERTRALINE HYDROCHLORIDE
     Route: 048
  4. KLONOPIN [Concomitant]
     Active Substance: CLONAZEPAM
     Route: 048

REACTIONS (9)
  - Chills [Recovered/Resolved]
  - Renal injury [Recovering/Resolving]
  - Hepatotoxicity [Unknown]
  - Blood pressure increased [Recovered/Resolved]
  - Meningitis aseptic [Recovered/Resolved]
  - Purpura [Recovering/Resolving]
  - Heart rate increased [Recovered/Resolved]
  - Haemolytic anaemia [Recovered/Resolved]
  - Intravascular haemolysis [Recovering/Resolving]

NARRATIVE: CASE EVENT DATE: 20140628
